FAERS Safety Report 7879423-4 (Version None)
Quarter: 2011Q4

REPORT INFORMATION
  Report Type: 
  Country: None (occurrence: None)
  Receive Date: 20111101
  Receipt Date: 20111101
  Transmission Date: 20120403
  Serious: Yes (Hospitalization)
  Sender: FDA-Public Use
  Company Number: US-B.I. PHARMACEUTICALS,INC./RIDGEFIELD-2011-BP-18139BP

PATIENT
  Age: 87 Year
  Sex: Female
  Weight: 76 kg

DRUGS (8)
  1. ZOLOFT [Concomitant]
  2. PRADAXA [Suspect]
     Dosage: 150 MG
     Route: 048
     Dates: start: 20110715, end: 20110716
  3. LEVAQUIN [Concomitant]
  4. ASPIRIN [Concomitant]
  5. ZYPREXA [Concomitant]
  6. DIGOXIN [Concomitant]
  7. METOPROLOL TARTRATE [Concomitant]
  8. BACTROBAN [Concomitant]

REACTIONS (1)
  - GASTROINTESTINAL HAEMORRHAGE [None]
